FAERS Safety Report 5288752-2 (Version None)
Quarter: 2007Q2

REPORT INFORMATION
  Report Type: 
  Country: None (occurrence: None)
  Receive Date: 20070405
  Receipt Date: 20070402
  Transmission Date: 20071010
  Serious: Yes (Disabling)
  Sender: FDA-Public Use
  Company Number: US-BOEHRINGER INGELHEIM PHARMACEUTICALS, INC.-2007-BP-01664BP

PATIENT
  Sex: Male

DRUGS (3)
  1. FLOMAX [Suspect]
     Indication: BENIGN PROSTATIC HYPERPLASIA
     Route: 048
  2. CHOLESTEROL MEDICINE [Concomitant]
  3. AVODART [Concomitant]

REACTIONS (3)
  - CATARACT [None]
  - EYE PAIN [None]
  - VISUAL ACUITY REDUCED [None]
